FAERS Safety Report 9395740 (Version 1)
Quarter: 2013Q3

REPORT INFORMATION
  Report Type: Spontaneous
  Country: US (occurrence: US)
  Receive Date: 20130711
  Receipt Date: 20130711
  Transmission Date: 20140515
  Serious: No
  Sender: FDA-Public Use
  Company Number: US-COVIDIEN/TYCO HEALTHCARE/MALLINCKRODT-T201301694

PATIENT
  Sex: Female
  Weight: 61.22 kg

DRUGS (1)
  1. OXYCODONE/ACETAMINOPHEN [Suspect]
     Indication: PAIN
     Dosage: 1 TAB PRN
     Route: 048
     Dates: start: 2004

REACTIONS (1)
  - Therapeutic response unexpected [Not Recovered/Not Resolved]
